FAERS Safety Report 9013923 (Version 1)
Quarter: 2013Q1

REPORT INFORMATION
  Report Type: Spontaneous
  Country: US (occurrence: None)
  Receive Date: 20130109
  Receipt Date: 20130109
  Transmission Date: 20140127
  Serious: Yes (Other)
  Sender: FDA-Public Use
  Company Number: None

PATIENT
  Age: 72 Year
  Sex: Male
  Weight: 99.79 kg

DRUGS (2)
  1. PRADAXA, 150 MG, BOEHRINGER INGELHEIM [Suspect]
     Route: 048
     Dates: start: 20120207, end: 20120724
  2. XARELTO, 20 MG, JANSSEN PHARM [Suspect]
     Route: 048
     Dates: start: 20120726, end: 20120808

REACTIONS (3)
  - Gastritis [None]
  - Drug ineffective [None]
  - Headache [None]
